FAERS Safety Report 4736947-6 (Version None)
Quarter: 2005Q3

REPORT INFORMATION
  Report Type: 
  Country: None (occurrence: None)
  Receive Date: 20050808
  Receipt Date: 20050726
  Transmission Date: 20060218
  Serious: No
  Sender: FDA-Public Use
  Company Number: 2005AP04263

PATIENT
  Age: 10027 Day
  Sex: Male
  Weight: 70 kg

DRUGS (1)
  1. QUETIAPINE FUMARATE [Suspect]
     Indication: SCHIZOPHRENIA
     Route: 048
     Dates: start: 20041214, end: 20050322

REACTIONS (1)
  - NEUTROPENIA [None]
